FAERS Safety Report 16383278 (Version 1)
Quarter: 2019Q2

REPORT INFORMATION
  Report Type: Spontaneous
  Country: CA (occurrence: CA)
  Receive Date: 20190516
  Receipt Date: 20190516
  Transmission Date: 20190711
  Serious: Yes (Life-Threatening, Hospitalization, Other)
  Sender: FDA-Public Use
  Company Number: None

PATIENT
  Age: 54 Year
  Sex: Female
  Weight: 47.25 kg

DRUGS (3)
  1. OCCASIONAL USE OF STEROID [Concomitant]
  2. EUCERIN EVERYDAY PROTECTION BODY [Suspect]
     Active Substance: HOMOSALATE\OCTINOXATE\OCTISALATE\TITANIUM DIOXIDE
     Indication: WOUND
     Dosage: ?          OTHER STRENGTH:SPF;QUANTITY:1 BOTTLE;?
     Route: 061
     Dates: start: 20091101, end: 20121101
  3. EUCERIN EVERYDAY PROTECTION BODY [Suspect]
     Active Substance: HOMOSALATE\OCTINOXATE\OCTISALATE\TITANIUM DIOXIDE
     Indication: SKIN IRRITATION
     Dosage: ?          OTHER STRENGTH:SPF;QUANTITY:1 BOTTLE;?
     Route: 061
     Dates: start: 20091101, end: 20121101

REACTIONS (1)
  - Endometrial cancer stage III [None]

NARRATIVE: CASE EVENT DATE: 20111130
